FAERS Safety Report 7301069-7 (Version None)
Quarter: 2011Q1

REPORT INFORMATION
  Report Type: 
  Country: None (occurrence: None)
  Receive Date: 20110218
  Receipt Date: 20110207
  Transmission Date: 20110831
  Serious: Yes (Other)
  Sender: FDA-Public Use
  Company Number: SE-SANOFI-AVENTIS-2011SA008129

PATIENT
  Age: 47 Year
  Sex: Male

DRUGS (5)
  1. ZOLPIDEM [Suspect]
     Route: 048
     Dates: start: 20070322
  2. ALCOHOL [Suspect]
     Indication: ALCOHOL USE
     Route: 048
     Dates: start: 20100819, end: 20100819
  3. ZOLPIDEM [Suspect]
     Dosage: ^TOOK 2 DOSE FORMS OF ZOLPIDEM 10 MG AROUND 18:00^
     Route: 048
     Dates: start: 20100819, end: 20100819
  4. CYMBALTA [Concomitant]
     Route: 048
  5. XANOR [Concomitant]
     Route: 048

REACTIONS (5)
  - AMNESIA [None]
  - OFF LABEL USE [None]
  - IMPAIRED DRIVING ABILITY [None]
  - ROAD TRAFFIC ACCIDENT [None]
  - INTENTIONAL OVERDOSE [None]
